FAERS Safety Report 7442365-2 (Version None)
Quarter: 2011Q2

REPORT INFORMATION
  Report Type: 
  Country: None (occurrence: None)
  Receive Date: 20110428
  Receipt Date: 20110422
  Transmission Date: 20111010
  Serious: Yes (Other)
  Sender: FDA-Public Use
  Company Number: US-ROCHE-751657

PATIENT
  Sex: Female
  Weight: 65.8 kg

DRUGS (2)
  1. ACCUTANE [Suspect]
     Route: 048
     Dates: start: 19981023, end: 19990901
  2. ACCUTANE [Suspect]
     Dosage: STRENGTH: 40 MG AND 20 MG
     Route: 048
     Dates: start: 19980301

REACTIONS (5)
  - COLITIS ULCERATIVE [None]
  - DYSPEPSIA [None]
  - EMOTIONAL DISTRESS [None]
  - ANAL FISSURE [None]
  - DEPRESSION [None]
